FAERS Safety Report 9535887 (Version 1)
Quarter: 2013Q3

REPORT INFORMATION
  Report Type: Spontaneous
  Country: US (occurrence: None)
  Receive Date: 20130917
  Receipt Date: 20130917
  Transmission Date: 20140515
  Serious: Yes (Life-Threatening, Hospitalization)
  Sender: FDA-Public Use
  Company Number: None

PATIENT
  Age: 45 None
  Sex: Male
  Weight: 94.2 kg

DRUGS (1)
  1. TRAMADOL [Suspect]
     Indication: PAIN
     Route: 048
     Dates: start: 20130601

REACTIONS (8)
  - Convulsion [None]
  - Loss of consciousness [None]
  - Fall [None]
  - Laceration [None]
  - Head injury [None]
  - Unresponsive to stimuli [None]
  - Delirium [None]
  - Cardio-respiratory arrest [None]
